FAERS Safety Report 10067749 (Version 1)
Quarter: 2014Q2

REPORT INFORMATION
  Report Type: Spontaneous
  Country: US (occurrence: None)
  Receive Date: 20140401
  Receipt Date: 20140401
  Transmission Date: 20141212
  Serious: Yes (Hospitalization)
  Sender: FDA-Public Use
  Company Number: PHEH2013US005895

PATIENT
  Age: 79 Year
  Sex: Female

DRUGS (1)
  1. TASIGNA (AMN107) CAPSULE, 200MG [Suspect]
     Indication: CHRONIC MYELOID LEUKAEMIA
     Route: 048
     Dates: start: 20110812

REACTIONS (2)
  - Rash erythematous [None]
  - Pruritus [None]
